FAERS Safety Report 19286431 (Version 4)
Quarter: 2021Q3

REPORT INFORMATION
  Report Type: Report from Study
  Country: DE (occurrence: DE)
  Receive Date: 20210521
  Receipt Date: 20210916
  Transmission Date: 20211014
  Serious: Yes (Hospitalization)
  Sender: FDA-Public Use
  Company Number: DE-ROCHE-2832492

PATIENT
  Age: 53 Year
  Sex: Male
  Weight: 81 kg

DRUGS (3)
  1. COVID?19 VACCINE [Concomitant]
     Dosage: DOSE =1 AMPULE
     Route: 058
     Dates: start: 20210511, end: 20210511
  2. CABOZANTINIB [Suspect]
     Active Substance: CABOZANTINIB
     Indication: NON-SMALL CELL LUNG CANCER METASTATIC
     Dosage: START DATE OF MOST RECENT DOSE OF STUDY DRUG PRIOR TO AE/SAE  16/MAY/2021 AT 40 MG
     Route: 048
     Dates: start: 20210505
  3. ATEZOLIZUMAB. [Suspect]
     Active Substance: ATEZOLIZUMAB
     Indication: NON-SMALL CELL LUNG CANCER METASTATIC
     Dosage: START DATE OF MOST RECENT DOSE OF ATEZOLIZUMAB PRIOR TO AE/SAE AT 1200 MG: 05/MAY/2021
     Route: 041
     Dates: start: 20210505

REACTIONS (1)
  - Herpes zoster [Recovered/Resolved]

NARRATIVE: CASE EVENT DATE: 20210516
